FAERS Safety Report 11520475 (Version 2)
Quarter: 2015Q4

REPORT INFORMATION
  Report Type: Report from Study
  Country: FR (occurrence: FR)
  Receive Date: 20150918
  Receipt Date: 20151028
  Transmission Date: 20160304
  Serious: Yes (Death, Other)
  Sender: FDA-Public Use
  Company Number: FR-BAYER-2015-416026

PATIENT
  Sex: Male
  Weight: 84 kg

DRUGS (20)
  1. ZESTORETIC [Concomitant]
     Active Substance: HYDROCHLOROTHIAZIDE\LISINOPRIL
     Dosage: 20/12.5 MG
  2. ATORVASTATIN [Concomitant]
     Active Substance: ATORVASTATIN
     Dosage: TOTAL DAILY DOSE 10 MG
  3. DOXORUBICIN [Concomitant]
     Active Substance: DOXORUBICIN
     Indication: HEPATOCELLULAR CARCINOMA
     Dosage: 50 MG - TACE WITH DOXORUBICIN, LIPIODOL, AND GELATION SPONGE
     Route: 013
  4. AMLODIPINE [Concomitant]
     Active Substance: AMLODIPINE BESYLATE
     Dosage: TOTAL DAILY DOSE 10 MG
  5. ROCEPHINE [Concomitant]
     Active Substance: CEFTRIAXONE SODIUM
     Indication: PROPHYLAXIS
     Dosage: TOTAL DAILY DOSE 2 G
     Dates: start: 20141118, end: 20141119
  6. OROKEN [Concomitant]
     Active Substance: CEFIXIME
     Indication: PROPHYLAXIS
     Dosage: TOTAL DAILY DOSE 400 MG
     Dates: start: 20141120, end: 20141130
  7. ATARAX [Concomitant]
     Active Substance: HYDROXYZINE\HYDROXYZINE HYDROCHLORIDE
     Indication: PROPHYLAXIS
     Dosage: TOTAL DAILY DOSE 100 MG
     Dates: start: 20141118, end: 20141118
  8. DIAMICRON [Concomitant]
     Active Substance: GLICLAZIDE
     Dosage: TOTAL DAILY DOSE 120 MG
     Dates: start: 20150201
  9. ROCEPHINE [Concomitant]
     Active Substance: CEFTRIAXONE SODIUM
     Indication: PROPHYLAXIS
     Dosage: TOTAL DAILY DOSE 2 G
     Dates: start: 20140916, end: 20140918
  10. ALBUMIN [Concomitant]
     Active Substance: ALBUMIN (HUMAN)
     Dosage: UNK
     Dates: start: 20150424, end: 20150424
  11. AVLOCARDYL [Concomitant]
     Active Substance: PROPRANOLOL HYDROCHLORIDE
     Dosage: TOTAL DAILY DOSE 160 MG
  12. OROKEN [Concomitant]
     Active Substance: CEFIXIME
     Indication: PROPHYLAXIS
     Dosage: TOTAL DAILY DOSE 400 MG
     Dates: start: 20140919, end: 20140929
  13. ATARAX [Concomitant]
     Active Substance: HYDROXYZINE\HYDROXYZINE HYDROCHLORIDE
     Indication: PROPHYLAXIS
     Dosage: TOTAL DAILY DOSE 100 MG
     Dates: start: 20140916, end: 20140916
  14. PERFALGAN [Concomitant]
     Active Substance: ACETAMINOPHEN
     Dosage: TOTAL DAILY DOSE 1 G
     Dates: start: 20140918, end: 20140918
  15. SORAFENIB [Suspect]
     Active Substance: SORAFENIB
     Indication: HEPATOCELLULAR CARCINOMA
     Dosage: 800 MG, DAILY (INITIATION)
     Route: 048
     Dates: start: 20150128, end: 20150424
  16. ACTISKENAN [Concomitant]
     Active Substance: MORPHINE SULFATE
     Dosage: TOTAL DAILY DOSE 10 MG
     Dates: start: 20140916, end: 20140916
  17. ACTISKENAN [Concomitant]
     Active Substance: MORPHINE SULFATE
     Dosage: TOTAL DAILY DOSE 10 MG
     Dates: start: 20141118, end: 20141118
  18. FUROSEMIDE. [Concomitant]
     Active Substance: FUROSEMIDE
     Indication: PROPHYLAXIS
     Dosage: TOTAL DAILY DOSE 40 MG
     Dates: start: 20140917, end: 20140917
  19. DOXORUBICIN [Concomitant]
     Active Substance: DOXORUBICIN
     Indication: HEPATOCELLULAR CARCINOMA
     Dosage: TACE WITH DOXORUBICIN
     Route: 013
  20. DEXERYL [CHLORPHENAM MAL,DEXTROMET HBR,GUAIF,PHENYLEPHR HCL] [Concomitant]
     Dosage: UNK
     Dates: start: 20150401

REACTIONS (2)
  - Ascites [Unknown]
  - Hepatic failure [Fatal]

NARRATIVE: CASE EVENT DATE: 20150424
